FAERS Safety Report 21081921 (Version 2)
Quarter: 2022Q3

REPORT INFORMATION
  Report Type: Spontaneous
  Country: IT (occurrence: None)
  Receive Date: 20220714
  Receipt Date: 20220723
  Transmission Date: 20221026
  Serious: Yes (Other)
  Sender: FDA-Public Use
  Company Number: 2022A250108

PATIENT
  Age: 52 Year
  Sex: Female

DRUGS (1)
  1. LYNPARZA [Suspect]
     Active Substance: OLAPARIB
     Route: 048
     Dates: start: 202009

REACTIONS (2)
  - Fluid retention [Not Recovered/Not Resolved]
  - Weight loss poor [Not Recovered/Not Resolved]
